FAERS Safety Report 8341104-0 (Version None)
Quarter: 2012Q2

REPORT INFORMATION
  Report Type: 
  Country: None (occurrence: None)
  Receive Date: 20120507
  Receipt Date: 20120501
  Transmission Date: 20120825
  Serious: Yes (Other)
  Sender: FDA-Public Use
  Company Number: US-GLAXOSMITHKLINE-A0969194A

PATIENT
  Age: 37 Year
  Sex: Female

DRUGS (2)
  1. VENTOLIN [Suspect]
     Indication: ASTHMA
  2. NEBULIZER [Concomitant]

REACTIONS (4)
  - ASTHMA [None]
  - MALAISE [None]
  - DRUG INEFFECTIVE [None]
  - DYSPNOEA [None]
